FAERS Safety Report 19310258 (Version 1)
Quarter: 2021Q2

REPORT INFORMATION
  Report Type: Report from Study
  Country: US (occurrence: US)
  Receive Date: 20210526
  Receipt Date: 20210526
  Transmission Date: 20210717
  Serious: No
  Sender: FDA-Public Use
  Company Number: NVSC2021US112201

PATIENT
  Sex: Male

DRUGS (1)
  1. KESIMPTA [Suspect]
     Active Substance: OFATUMUMAB
     Indication: MULTIPLE SCLEROSIS RELAPSE
     Dosage: 20 MG, QMO
     Route: 058
     Dates: start: 20201019

REACTIONS (3)
  - Influenza like illness [Not Recovered/Not Resolved]
  - COVID-19 [Unknown]
  - Oropharyngeal pain [Not Recovered/Not Resolved]
